FAERS Safety Report 22284909 (Version 1)
Quarter: 2023Q2

REPORT INFORMATION
  Report Type: Spontaneous
  Country: US (occurrence: None)
  Receive Date: 20230503
  Receipt Date: 20230503
  Transmission Date: 20230722
  Serious: Yes (Other)
  Sender: FDA-Public Use
  Company Number: None

PATIENT
  Age: 49 Year
  Sex: Female
  Weight: 67.5 kg

DRUGS (6)
  1. EMGALITY [Suspect]
     Active Substance: GALCANEZUMAB-GNLM
     Indication: Migraine
     Dates: start: 20220627, end: 20220721
  2. MYCOPHENOLIC ACID [Concomitant]
     Active Substance: MYCOPHENOLIC ACID
  3. DUPIXENT [Concomitant]
     Active Substance: DUPILUMAB
  4. DOXEPIN [Concomitant]
     Active Substance: DOXEPIN
  5. CLOBETASOL [Concomitant]
     Active Substance: CLOBETASOL
  6. SLYND [Concomitant]
     Active Substance: DROSPIRENONE

REACTIONS (4)
  - Urticaria [None]
  - Insomnia [None]
  - Alopecia [None]
  - Skin disorder [None]

NARRATIVE: CASE EVENT DATE: 20220627
